FAERS Safety Report 5571289-0 (Version None)
Quarter: 2007Q4

REPORT INFORMATION
  Report Type: 
  Country: None (occurrence: None)
  Receive Date: 20071221
  Receipt Date: 20070626
  Transmission Date: 20080405
  Serious: No
  Sender: FDA-Public Use
  Company Number: A0649967A

PATIENT
  Age: 46 Year
  Sex: Female

DRUGS (13)
  1. FLONASE [Suspect]
     Route: 045
  2. VYTORIN [Concomitant]
  3. PENICILLIN VK [Concomitant]
  4. CIPROFLOXACIN HCL [Concomitant]
  5. MUCOBID [Concomitant]
  6. RELAFEN [Concomitant]
  7. SINGULAIR [Concomitant]
  8. PRILOSEC [Concomitant]
  9. ALLEGRA D 24 HOUR [Concomitant]
  10. LOVASTATIN [Concomitant]
  11. VALTREX [Concomitant]
  12. ALBUTEROL [Concomitant]
  13. VICODIN [Concomitant]

REACTIONS (4)
  - EPISTAXIS [None]
  - MIGRAINE [None]
  - MUCOUS MEMBRANE DISORDER [None]
  - RHINALGIA [None]
